FAERS Safety Report 20717619 (Version 1)
Quarter: 2022Q2

REPORT INFORMATION
  Report Type: Spontaneous
  Country: FR (occurrence: FR)
  Receive Date: 20220417
  Receipt Date: 20220417
  Transmission Date: 20220721
  Serious: Yes (Disabling)
  Sender: FDA-Public Use
  Company Number: FR-ANIPHARMA-2022-FR-000057

PATIENT
  Age: 77 Year
  Sex: Male

DRUGS (4)
  1. ATACAND [Suspect]
     Active Substance: CANDESARTAN CILEXETIL
     Indication: Hypertension
     Dosage: STOPPED AT AN UNKNOWN DATE BETWEEN DEC-2021 ANDMAR-2022 /
     Route: 048
     Dates: start: 202203
  2. ESIDREX [Concomitant]
     Active Substance: HYDROCHLOROTHIAZIDE
     Route: 065
  3. NEBIVOLOL [Concomitant]
     Active Substance: NEBIVOLOL
     Route: 065
  4. DILTIAZEM HYDROCHLORIDE [Concomitant]
     Active Substance: DILTIAZEM HYDROCHLORIDE
     Route: 065
     Dates: start: 20220316

REACTIONS (4)
  - Dizziness [Not Recovered/Not Resolved]
  - Respiratory disorder [Not Recovered/Not Resolved]
  - Insomnia [Not Recovered/Not Resolved]
  - Hypoaesthesia [Not Recovered/Not Resolved]

NARRATIVE: CASE EVENT DATE: 20220101
